FAERS Safety Report 22771610 (Version 3)
Quarter: 2024Q3

REPORT INFORMATION
  Report Type: Spontaneous
  Country: JP (occurrence: JP)
  Receive Date: 20230801
  Receipt Date: 20240730
  Transmission Date: 20241016
  Serious: Yes (Other)
  Sender: MERCK
  Company Number: JP-ONO-2023JP019120

PATIENT
  Age: 8 Decade
  Sex: Male

DRUGS (6)
  1. APREPITANT [Interacting]
     Active Substance: APREPITANT
     Indication: Prophylaxis of nausea and vomiting
     Dosage: UNK
     Route: 048
  2. OXYCODONE [Interacting]
     Active Substance: OXYCODONE
     Indication: Proctalgia
     Dosage: 48 MG, EVERYDAY
     Route: 065
  3. OXYCODONE [Interacting]
     Active Substance: OXYCODONE
     Dosage: 108 MG, EVERYDAY
     Route: 065
  4. OXYCODONE [Interacting]
     Active Substance: OXYCODONE
     Dosage: 48 MG, EVERYDAY
     Route: 065
  5. DEXAMETHASONE [Concomitant]
     Active Substance: DEXAMETHASONE
     Indication: Prophylaxis of nausea and vomiting
     Dosage: UNK
     Route: 065
  6. PALONOSETRON [Concomitant]
     Active Substance: PALONOSETRON
     Indication: Prophylaxis of nausea and vomiting
     Dosage: UNK
     Route: 065

REACTIONS (3)
  - Respiratory depression [Recovering/Resolving]
  - Sedation complication [Recovering/Resolving]
  - Drug interaction [Unknown]
